FAERS Safety Report 25200622 (Version 2)
Quarter: 2025Q2

REPORT INFORMATION
  Report Type: Report from Study
  Country: CH (occurrence: CH)
  Receive Date: 20250415
  Receipt Date: 20250428
  Transmission Date: 20250717
  Serious: Yes (Other)
  Sender: BAYER HEALTHCARE PHARMACEUTICALS INC.
  Company Number: CH-BAYER-2025A047026

PATIENT
  Age: 25 Year
  Sex: Female

DRUGS (1)
  1. MIRENA [Suspect]
     Active Substance: LEVONORGESTREL
     Dosage: 20?G/DAY
     Route: 015
     Dates: start: 20250404, end: 20250404

REACTIONS (4)
  - Syncope [None]
  - Epilepsy [None]
  - Procedural pain [None]
  - Complication of device insertion [None]

NARRATIVE: CASE EVENT DATE: 20250404
